FAERS Safety Report 20167489 (Version 2)
Quarter: 2021Q4

REPORT INFORMATION
  Report Type: Spontaneous
  Country: US (occurrence: US)
  Receive Date: 20211209
  Receipt Date: 20211224
  Transmission Date: 20220303
  Serious: Yes (Other)
  Sender: FDA-Public Use
  Company Number: US-TEVA-2021-US-1985694

PATIENT
  Age: 12 Year
  Sex: Female

DRUGS (7)
  1. CYCLOSPORINE [Suspect]
     Active Substance: CYCLOSPORINE
     Indication: Dermatitis
     Route: 065
  2. DESOXIMETASONE [Suspect]
     Active Substance: DESOXIMETASONE
     Indication: Dermatitis
     Route: 065
  3. BACITRACIN [Suspect]
     Active Substance: BACITRACIN
     Indication: Dermatitis
     Route: 065
  4. METHOTREXATE [Suspect]
     Active Substance: METHOTREXATE
     Indication: Dermatitis
     Route: 065
  5. PIMECROLIMUS [Suspect]
     Active Substance: PIMECROLIMUS
     Indication: Dermatitis
     Route: 061
  6. DUPILUMAB [Suspect]
     Active Substance: DUPILUMAB
     Indication: Dermatitis atopic
     Route: 065
  7. DESONIDE [Suspect]
     Active Substance: DESONIDE
     Indication: Dermatitis
     Route: 065

REACTIONS (3)
  - Dermatitis [Recovering/Resolving]
  - Drug hypersensitivity [Unknown]
  - Drug ineffective [Unknown]
